FAERS Safety Report 8414880-6 (Version None)
Quarter: 2012Q2

REPORT INFORMATION
  Report Type: 
  Country: None (occurrence: None)
  Receive Date: 20120601
  Receipt Date: 20120601
  Transmission Date: 20120825
  Serious: No
  Sender: FDA-Public Use
  Company Number: None

PATIENT
  Sex: Female

DRUGS (3)
  1. RIBAVIRIN [Suspect]
     Dosage: 600MG BID PO
     Route: 048
     Dates: start: 20120223
  2. VICTRELIS [Concomitant]
  3. PEGASYS [Suspect]
     Dosage: 180MCG QWEEK SQ
     Route: 058
     Dates: start: 20120223

REACTIONS (4)
  - VOMITING [None]
  - DIARRHOEA [None]
  - BACK PAIN [None]
  - NAUSEA [None]
